FAERS Safety Report 5345345-6 (Version None)
Quarter: 2007Q2

REPORT INFORMATION
  Report Type: 
  Country: None (occurrence: None)
  Receive Date: 20070605
  Receipt Date: 20070525
  Transmission Date: 20071010
  Serious: Yes (Other)
  Sender: FDA-Public Use
  Company Number: PHBS2007BR08838

PATIENT
  Age: 60 Year
  Sex: Female
  Weight: 62 kg

DRUGS (6)
  1. DIOVAN HCT [Suspect]
     Indication: HYPERTENSION
     Dosage: VALS 80 MG/ HCT 12.5 MG/DAY
     Route: 048
     Dates: start: 20070116
  2. DIOVAN HCT [Suspect]
     Dosage: VALS 80 / HCT 12.5, BID
     Route: 048
     Dates: start: 20070429
  3. NOVALGINA [Concomitant]
     Indication: HYPERTENSION
     Dosage: 40 DROPS/DAY
     Route: 048
  4. AMOXICILLIN [Concomitant]
     Indication: DENTAL IMPLANTATION
     Route: 048
     Dates: start: 20070420, end: 20070427
  5. CAPOTEN [Concomitant]
     Indication: HYPERTENSION
     Route: 042
  6. DIPYRONE [Concomitant]
     Indication: HYPERTENSION
     Route: 042

REACTIONS (10)
  - AFFECT LABILITY [None]
  - BLOOD PRESSURE FLUCTUATION [None]
  - DENTAL PROSTHESIS USER [None]
  - HEADACHE [None]
  - INSOMNIA [None]
  - PALPITATIONS [None]
  - PHARMACEUTICAL PRODUCT COMPLAINT [None]
  - PLASTIC SURGERY [None]
  - URINE OUTPUT INCREASED [None]
  - WEIGHT INCREASED [None]
